FAERS Safety Report 10334264 (Version 1)
Quarter: 2014Q3

REPORT INFORMATION
  Report Type: Spontaneous
  Country: JP (occurrence: JP)
  Receive Date: 20140723
  Receipt Date: 20140723
  Transmission Date: 20150326
  Serious: Yes (Hospitalization)
  Sender: FDA-Public Use
  Company Number: JP-JNJFOC-20140712708

PATIENT
  Sex: Male

DRUGS (2)
  1. RIUP X5 [Suspect]
     Active Substance: MINOXIDIL
     Route: 061
  2. RIUP X5 [Suspect]
     Active Substance: MINOXIDIL
     Indication: ANDROGENETIC ALOPECIA
     Dosage: THERAPY DURATION: 1 YEAR AND OVER
     Route: 061
     Dates: start: 2013, end: 2014

REACTIONS (1)
  - Haemangioma [Recovered/Resolved]

NARRATIVE: CASE EVENT DATE: 201307
